FAERS Safety Report 5444896-3 (Version None)
Quarter: 2007Q3

REPORT INFORMATION
  Report Type: 
  Country: None (occurrence: None)
  Receive Date: 20070906
  Receipt Date: 20070831
  Transmission Date: 20080115
  Serious: Yes (Other)
  Sender: FDA-Public Use
  Company Number: A0676792A

PATIENT
  Sex: Male
  Weight: 70 kg

DRUGS (2)
  1. COMBIVIR [Suspect]
     Indication: HIV INFECTION
     Route: 048
     Dates: start: 20020701, end: 20061201
  2. TRIZIVIR [Suspect]
     Indication: HIV INFECTION
     Route: 048

REACTIONS (8)
  - DISCOMFORT [None]
  - GLOMERULAR FILTRATION RATE [None]
  - HYPERTENSION [None]
  - NAUSEA [None]
  - NEUROPATHY [None]
  - PHARMACEUTICAL PRODUCT COMPLAINT [None]
  - POOR QUALITY DRUG ADMINISTERED [None]
  - VOMITING [None]
